FAERS Safety Report 9065884 (Version 1)
Quarter: 2013Q1

REPORT INFORMATION
  Report Type: Report from Study
  Country: US (occurrence: US)
  Receive Date: 20130131
  Receipt Date: 20130131
  Transmission Date: 20140127
  Serious: No
  Sender: FDA-Public Use
  Company Number: US-ABBOTT-12P-163-1017258-00

PATIENT
  Age: 51 Year
  Sex: Female

DRUGS (3)
  1. HUMIRA [Suspect]
     Indication: CROHN^S DISEASE
     Route: 058
     Dates: start: 201210
  2. COUMADIN [Concomitant]
     Indication: THROMBOSIS
     Dosage: 5MG DAILY
  3. COUMADIN [Concomitant]
     Dosage: 10MG DAILY

REACTIONS (2)
  - Back pain [Not Recovered/Not Resolved]
  - Blood viscosity increased [Unknown]
